FAERS Safety Report 15262588 (Version 1)
Quarter: 2018Q3

REPORT INFORMATION
  Report Type: Spontaneous
  Country: US (occurrence: US)
  Receive Date: 20180809
  Receipt Date: 20180809
  Transmission Date: 20181010
  Serious: Yes (Other)
  Sender: FDA-Public Use
  Company Number: US-NEOS THERAPEUTICS, LP-2018NEO00064

PATIENT
  Age: 14 Year
  Sex: Female

DRUGS (2)
  1. ADZENYS XR?ODT [Suspect]
     Active Substance: AMPHETAMINE
     Dosage: UNK
     Dates: start: 20180502
  2. ADZENYS XR?ODT [Suspect]
     Active Substance: AMPHETAMINE

REACTIONS (4)
  - Hallucination [Not Recovered/Not Resolved]
  - Delusional perception [Not Recovered/Not Resolved]
  - Crying [Not Recovered/Not Resolved]
  - Abnormal behaviour [Not Recovered/Not Resolved]
